FAERS Safety Report 8499740-7 (Version None)
Quarter: 2012Q3

REPORT INFORMATION
  Report Type: 
  Country: None (occurrence: None)
  Receive Date: 20120710
  Receipt Date: 20120706
  Transmission Date: 20120928
  Serious: No
  Sender: FDA-Public Use
  Company Number: US-PFIZER INC-2012164061

PATIENT
  Sex: Female
  Weight: 69.342 kg

DRUGS (3)
  1. ZOLOFT [Suspect]
     Dosage: UNK
  2. BUPROPION HYDROCHLORIDE [Suspect]
     Dosage: UNK
  3. CYMBALTA [Suspect]
     Dosage: UNK

REACTIONS (1)
  - DRUG INEFFECTIVE [None]
